FAERS Safety Report 5392455-3 (Version None)
Quarter: 2007Q3

REPORT INFORMATION
  Report Type: 
  Country: None (occurrence: None)
  Receive Date: 20070720
  Receipt Date: 20070717
  Transmission Date: 20080115
  Serious: Yes (Congenital Anomaly)
  Sender: FDA-Public Use
  Company Number: DE-BRISTOL-MYERS SQUIBB COMPANY-13692827

PATIENT
  Age: 22 Year
  Sex: Female
  Weight: 55 kg

DRUGS (4)
  1. SUSTIVA [Suspect]
     Indication: HIV INFECTION
     Dates: start: 20060901, end: 20070101
  2. TRUVADA [Suspect]
     Indication: HIV INFECTION
     Dates: start: 20060901, end: 20070101
  3. KALETRA [Suspect]
     Dates: start: 20070501
  4. COMBIVIR [Suspect]
     Dates: start: 20070501

REACTIONS (3)
  - MEDICATION ERROR [None]
  - PREGNANCY [None]
  - TALIPES [None]
